FAERS Safety Report 19786242 (Version 1)
Quarter: 2021Q3

REPORT INFORMATION
  Report Type: Report from Study
  Country: US (occurrence: US)
  Receive Date: 20210903
  Receipt Date: 20210903
  Transmission Date: 20211014
  Serious: Yes (Other)
  Sender: FDA-Public Use
  Company Number: US-SA-2021SA270187

PATIENT
  Age: 41 Year
  Sex: Female

DRUGS (1)
  1. DUPILUMAB [Suspect]
     Active Substance: DUPILUMAB
     Indication: NASAL POLYPS
     Dosage: 300 MG, QOW
     Route: 058
     Dates: start: 20210708

REACTIONS (3)
  - General physical condition abnormal [Unknown]
  - Mental status changes [Unknown]
  - Blood blister [Unknown]

NARRATIVE: CASE EVENT DATE: 2021
